FAERS Safety Report 7975215-6 (Version None)
Quarter: 2011Q4

REPORT INFORMATION
  Report Type: 
  Country: None (occurrence: None)
  Receive Date: 20111213
  Receipt Date: 20110922
  Transmission Date: 20120403
  Serious: Yes (Other)
  Sender: FDA-Public Use
  Company Number: US-AMGEN-USASP2011048983

PATIENT
  Age: 90 Year
  Sex: Male

DRUGS (1)
  1. ENBREL [Suspect]
     Indication: PSORIASIS
     Dosage: 50 MG, QWK
     Dates: start: 20060101

REACTIONS (8)
  - PRODUCTIVE COUGH [None]
  - URINE COLOUR ABNORMAL [None]
  - HYPOACUSIS [None]
  - POLLAKIURIA [None]
  - ARTHRALGIA [None]
  - MEMORY IMPAIRMENT [None]
  - SKIN CANCER [None]
  - PSORIASIS [None]
